FAERS Safety Report 23518597 (Version 1)
Quarter: 2024Q1

REPORT INFORMATION
  Report Type: Spontaneous
  Country: IN (occurrence: IN)
  Receive Date: 20240213
  Receipt Date: 20240213
  Transmission Date: 20240410
  Serious: Yes (Death)
  Sender: FDA-Public Use
  Company Number: IN-002147023-NVSC2024IN030903

PATIENT
  Sex: Female

DRUGS (1)
  1. GLIVEC [Suspect]
     Active Substance: IMATINIB MESYLATE
     Indication: Chronic myeloid leukaemia
     Dosage: 400 MG (1 X 400MG)
     Route: 065

REACTIONS (5)
  - Septic shock [Fatal]
  - Acute kidney injury [Fatal]
  - Acute coronary syndrome [Fatal]
  - Angina unstable [Fatal]
  - Subarachnoid haemorrhage [Fatal]
